FAERS Safety Report 24978432 (Version 1)
Quarter: 2025Q1

REPORT INFORMATION
  Report Type: Report from Study
  Country: CA (occurrence: CA)
  Receive Date: 20250217
  Receipt Date: 20250217
  Transmission Date: 20250409
  Serious: Yes (Disabling)
  Sender: NOVARTIS
  Company Number: CA-002147023-NVSC2025CA026460

PATIENT
  Age: 25 Year
  Sex: Female

DRUGS (1)
  1. KESIMPTA [Suspect]
     Active Substance: OFATUMUMAB
     Indication: Relapsing-remitting multiple sclerosis
     Dosage: 20 MG, QMO
     Route: 058
     Dates: start: 20220709

REACTIONS (2)
  - Influenza [Recovering/Resolving]
  - Ear infection [Recovering/Resolving]

NARRATIVE: CASE EVENT DATE: 20250201
